FAERS Safety Report 16239737 (Version 5)
Quarter: 2021Q2

REPORT INFORMATION
  Report Type: Report from Study
  Country: US (occurrence: US)
  Receive Date: 20190425
  Receipt Date: 20210510
  Transmission Date: 20210716
  Serious: No
  Sender: FDA-Public Use
  Company Number: PHEH2019US017311

PATIENT
  Age: 68 Year
  Sex: Male
  Weight: 86.18 kg

DRUGS (3)
  1. GLEEVEC [Suspect]
     Active Substance: IMATINIB MESYLATE
     Indication: CHRONIC MYELOID LEUKAEMIA
     Dosage: 400 MG, QD
     Route: 048
     Dates: start: 20181109, end: 202010
  2. BOSULIF [Suspect]
     Active Substance: BOSUTINIB MONOHYDRATE
     Indication: PRODUCT USED FOR UNKNOWN INDICATION
     Dosage: UNK
     Route: 065
  3. GLEEVEC [Suspect]
     Active Substance: IMATINIB MESYLATE
     Dosage: UNK
     Route: 065
     Dates: end: 20201018

REACTIONS (4)
  - Diarrhoea [Unknown]
  - Ejection fraction decreased [Unknown]
  - Cardiac disorder [Unknown]
  - Pain [Not Recovered/Not Resolved]

NARRATIVE: CASE EVENT DATE: 20181109
